FAERS Safety Report 15613450 (Version 6)
Quarter: 2019Q2

REPORT INFORMATION
  Report Type: Spontaneous
  Country: IT (occurrence: IT)
  Receive Date: 20181113
  Receipt Date: 20190528
  Transmission Date: 20190711
  Serious: Yes (Hospitalization, Other)
  Sender: FDA-Public Use
  Company Number: IT-MYLANLABS-2018M1085922

PATIENT
  Age: 83 Year
  Sex: Female

DRUGS (3)
  1. LEVOFLOXACIN. [Interacting]
     Active Substance: LEVOFLOXACIN
     Dosage: UNK
  2. WARFARIN [Interacting]
     Active Substance: WARFARIN
     Indication: PRODUCT USED FOR UNKNOWN INDICATION
     Dosage: UNK
  3. LEVOFLOXACIN. [Suspect]
     Active Substance: LEVOFLOXACIN
     Indication: BRONCHITIS
     Dosage: 500 MG, QD
     Route: 048
     Dates: start: 20180522, end: 20180526

REACTIONS (9)
  - Medication error [Unknown]
  - Abdominal pain upper [Unknown]
  - Drug abuse [Unknown]
  - International normalised ratio increased [Recovering/Resolving]
  - Overdose [Unknown]
  - Agitation [Recovering/Resolving]
  - Intentional product misuse [Unknown]
  - Acute kidney injury [Recovering/Resolving]
  - Labelled drug-drug interaction medication error [Unknown]

NARRATIVE: CASE EVENT DATE: 2018
